FAERS Safety Report 6209670-9 (Version None)
Quarter: 2009Q2

REPORT INFORMATION
  Report Type: 
  Country: None (occurrence: None)
  Receive Date: 20090527
  Receipt Date: 20090511
  Transmission Date: 20091009
  Serious: Yes (Other)
  Sender: FDA-Public Use
  Company Number: B0558031A

PATIENT

DRUGS (2)
  1. MELPHALAN (FORMULATION UNKNOWN) (GENERIC) (MELPHALAN) [Suspect]
     Indication: MALIGNANT MELANOMA
  2. DACTINOMYCIN [Suspect]
     Indication: MALIGNANT MELANOMA

REACTIONS (2)
  - COMPARTMENT SYNDROME [None]
  - DRUG TOXICITY [None]
